FAERS Safety Report 4788088-X (Version None)
Quarter: 2005Q4

REPORT INFORMATION
  Report Type: 
  Country: None (occurrence: None)
  Receive Date: 20051004
  Receipt Date: 20051004
  Transmission Date: 20060501
  Serious: Yes (Hospitalization, Other)
  Sender: FDA-Public Use
  Company Number: None

PATIENT
  Sex: Female
  Weight: 81.27 kg

DRUGS (8)
  1. PACLITAXEL [Suspect]
     Indication: NON-SMALL CELL LUNG CANCER
     Dosage: SEE IMAGE
     Route: 042
     Dates: start: 20050912
  2. CARBOPLATIN [Suspect]
     Dosage: SEE IMAGE
     Route: 036
     Dates: start: 20050912
  3. RADIATION (XRT) [Suspect]
     Dosage: SEE IMAGE
  4. BUSPAR [Concomitant]
  5. HYDROCHLOROTHIAZIDE [Concomitant]
  6. MOBIC [Concomitant]
  7. NORVASC [Concomitant]
  8. PLAVIX [Concomitant]

REACTIONS (4)
  - ASTHENIA [None]
  - DYSURIA [None]
  - FATIGUE [None]
  - NEUTROPENIA [None]
